FAERS Safety Report 12239296 (Version 2)
Quarter: 2016Q2

REPORT INFORMATION
  Report Type: Other
  Country: IT (occurrence: IT)
  Receive Date: 20160405
  Receipt Date: 20160418
  Transmission Date: 20160815
  Serious: Yes (Other)
  Sender: FDA-Public Use
  Company Number: IT-MYLANLABS-2016M1013970

PATIENT

DRUGS (2)
  1. HALDOL [Suspect]
     Active Substance: HALOPERIDOL
     Indication: PRODUCT USED FOR UNKNOWN INDICATION
     Dosage: UNK
     Route: 048
     Dates: start: 20160310, end: 20160310
  2. VENLAFAXINE [Suspect]
     Active Substance: VENLAFAXINE HYDROCHLORIDE
     Indication: PRODUCT USED FOR UNKNOWN INDICATION
     Dosage: UNK
     Route: 048
     Dates: start: 20160310, end: 20160310

REACTIONS (6)
  - Agitation [Unknown]
  - Tachycardia [Unknown]
  - Self injurious behaviour [Unknown]
  - Intentional product misuse [Unknown]
  - Pain [Unknown]
  - Coma [Unknown]

NARRATIVE: CASE EVENT DATE: 20160310
